FAERS Safety Report 10953000 (Version 1)
Quarter: 2015Q1

REPORT INFORMATION
  Report Type: Spontaneous
  Country: US (occurrence: None)
  Receive Date: 20150323
  Receipt Date: 20150323
  Transmission Date: 20150721
  Serious: Yes (Hospitalization)
  Sender: FDA-Public Use
  Company Number: FK201501224

PATIENT
  Age: 71 Year
  Sex: Male

DRUGS (1)
  1. OCTREOTIDE [Suspect]
     Active Substance: OCTREOTIDE
     Indication: OESOPHAGEAL VARICES HAEMORRHAGE
     Dosage: UNKNOWN, CONTINUED DRIP, UNKNOWN

REACTIONS (3)
  - Hypothermia [None]
  - Sinus bradycardia [None]
  - Off label use [None]
